FAERS Safety Report 6056836-7 (Version None)
Quarter: 2009Q1

REPORT INFORMATION
  Report Type: 
  Country: None (occurrence: None)
  Receive Date: 20090126
  Receipt Date: 20090126
  Transmission Date: 20090719
  Serious: Yes (Other)
  Sender: FDA-Public Use
  Company Number: None

PATIENT
  Sex: Female
  Weight: 90.7194 kg

DRUGS (5)
  1. DOCETAXEL [Suspect]
     Indication: BREAST CANCER STAGE II
     Dosage: 100 MG/M2 Q3WEEKS IV
     Route: 042
     Dates: start: 20020110, end: 20020314
  2. INDERAL [Concomitant]
  3. DIOVAN [Concomitant]
  4. POTASSIUM CHLORIDE [Concomitant]
  5. LORAZEPAM [Concomitant]

REACTIONS (15)
  - ARTHRALGIA [None]
  - BLEPHAROSPASM [None]
  - DRUG EFFECT DECREASED [None]
  - DRY EYE [None]
  - EYE DISORDER [None]
  - FATIGUE [None]
  - IMPAIRED DRIVING ABILITY [None]
  - MUSCLE SPASMS [None]
  - NAIL TOXICITY [None]
  - NEUROPATHY PERIPHERAL [None]
  - NIGHT BLINDNESS [None]
  - PANCYTOPENIA [None]
  - PHOTOSENSITIVITY REACTION [None]
  - STOMATITIS [None]
  - VISUAL ACUITY REDUCED [None]
